FAERS Safety Report 10601011 (Version 2)
Quarter: 2014Q4

REPORT INFORMATION
  Report Type: Report from Study
  Country: US (occurrence: US)
  Receive Date: 20141124
  Receipt Date: 20141124
  Transmission Date: 20150529
  Serious: Yes (Other)
  Sender: FDA-Public Use
  Company Number: PHEH2014US019890

PATIENT
  Sex: Male

DRUGS (33)
  1. CYPROHEPTADINE. [Concomitant]
     Active Substance: CYPROHEPTADINE
     Indication: PRODUCT USED FOR UNKNOWN INDICATION
     Dosage: 4 MG, BID
     Route: 065
  2. TRIAMCINOLONE ACETONIDE. [Concomitant]
     Active Substance: TRIAMCINOLONE ACETONIDE
     Indication: PRODUCT USED FOR UNKNOWN INDICATION
     Dosage: 1 APPLICATIONS TWICE A DAY BY TOPICAL ROUTE AS NEEDED
     Route: 065
  3. ALBUTEROL. [Concomitant]
     Active Substance: ALBUTEROL
     Dosage: 2.5 MG/3 ML (0.083%) 1 VIAL VIA NEB TWICE A DAY
     Dates: start: 20131223
  4. PULMOZYME [Concomitant]
     Active Substance: DORNASE ALFA
     Indication: PRODUCT USED FOR UNKNOWN INDICATION
     Route: 065
  5. NASONEX [Concomitant]
     Active Substance: MOMETASONE FUROATE
     Indication: HYPERSENSITIVITY
     Dosage: 50 MCG/ ACTUATION 1 SPRAY IN EACH NOSTRIL TWICE DAY AS NEEDED
     Route: 065
  6. CREON [Concomitant]
     Active Substance: PANCRELIPASE AMYLASE\PANCRELIPASE LIPASE\PANCRELIPASE PROTEASE
     Indication: PRODUCT USED FOR UNKNOWN INDICATION
     Route: 065
  7. NOVOLOG [Concomitant]
     Active Substance: INSULIN ASPART
     Indication: PRODUCT USED FOR UNKNOWN INDICATION
     Dosage: 100 UNIT/ML SUBCUTANEOUS SOLUTION
  8. TOBI [Suspect]
     Active Substance: TOBRAMYCIN
     Indication: CYSTIC FIBROSIS
     Dosage: 300 MG PER 5 ML, BID
     Route: 055
     Dates: start: 2008, end: 2012
  9. CAYSTON [Concomitant]
     Active Substance: AZTREONAM
     Indication: PRODUCT USED FOR UNKNOWN INDICATION
     Dosage: UNK
     Route: 065
  10. SINGULAIR [Concomitant]
     Active Substance: MONTELUKAST SODIUM
     Indication: PRODUCT USED FOR UNKNOWN INDICATION
     Dosage: 1 DF, QD
     Route: 065
  11. PULMOZYME [Concomitant]
     Active Substance: DORNASE ALFA
     Dosage: 1MG/ML SOLUTION FOR INHALATION 1 VIAL VIA NEB DAILY
     Route: 065
  12. CREON [Concomitant]
     Active Substance: PANCRELIPASE AMYLASE\PANCRELIPASE LIPASE\PANCRELIPASE PROTEASE
     Dosage: 3 CAPSULE BEFORE MEALS, 1 BEFORE SNACKS, 2 BEFORE BOLUS ALONE, 4 BEFORE NIGHT AND AFTER NIGHT GB FEE
     Route: 065
  13. PROVENTIL HFA [Concomitant]
     Active Substance: ALBUTEROL SULFATE
     Indication: DYSPNOEA
  14. TWOCAL HN [Concomitant]
     Indication: PRODUCT USED FOR UNKNOWN INDICATION
     Dosage: 0.08 GRAM- 2 KCAL/ML ORAL LIQUID GIVE 4 CANS VIA BUTTON OVERNIGHT
     Route: 065
  15. REGLAN//METOCLOPRAMIDE [Concomitant]
     Indication: PRODUCT USED FOR UNKNOWN INDICATION
     Route: 065
  16. PEPTAMEN [Concomitant]
     Indication: PRODUCT USED FOR UNKNOWN INDICATION
     Dosage: 1.5 ORAL LIQUID BOLUS 1 CAN AT LUNCH (AFTERNOON) 4 DAYS A WEEK
     Route: 065
  17. HUMALOG [Concomitant]
     Active Substance: INSULIN LISPRO
     Dosage: 1.5 UNITS/HR
     Route: 065
  18. ADVAIR HFA [Concomitant]
     Active Substance: FLUTICASONE PROPIONATE\SALMETEROL XINAFOATE
     Indication: PRODUCT USED FOR UNKNOWN INDICATION
     Dosage: UNK
     Route: 065
  19. PREVACID [Concomitant]
     Active Substance: LANSOPRAZOLE
     Indication: PRODUCT USED FOR UNKNOWN INDICATION
     Route: 065
  20. PATADAY [Concomitant]
     Active Substance: OLOPATADINE HYDROCHLORIDE
     Indication: HYPERSENSITIVITY
     Dosage: 0.2 %, 1-2 TIMES A DAY AS NEEDED
     Route: 065
  21. PROVENTIL HFA [Concomitant]
     Active Substance: ALBUTEROL SULFATE
     Indication: COUGH
     Dosage: 90 MCG/ ACTUATION (2 PUFFS EVEY 3-4 HOUS) AS NEEDED
     Route: 055
  22. HUMALOG [Concomitant]
     Active Substance: INSULIN LISPRO
     Dosage: 0.5 UNITS/HR
     Route: 065
  23. HUMALOG [Concomitant]
     Active Substance: INSULIN LISPRO
     Dosage: I:C 1:12
     Route: 065
  24. ALBUTEROL. [Concomitant]
     Active Substance: ALBUTEROL
     Indication: PRODUCT USED FOR UNKNOWN INDICATION
     Dosage: UNK
     Route: 055
  25. CAYSTON [Concomitant]
     Active Substance: AZTREONAM
     Dosage: (75 MG/ML) 1 VIAL 3 TIMES A DAY WITH ALTERA NEB, CYCLE ON 28 DAYS OFF 28 DAYS
     Route: 065
  26. ADDEX [Concomitant]
     Indication: PRODUCT USED FOR UNKNOWN INDICATION
     Route: 065
  27. AZITHROMYCIN [Concomitant]
     Active Substance: AZITHROMYCIN ANHYDROUS
     Indication: PRODUCT USED FOR UNKNOWN INDICATION
     Dosage: 250 MG, 1 TABLET BY MOUTH ON MONDAY, WEDNESDAY AND FRIDAY
     Route: 065
     Dates: start: 20140702, end: 20140818
  28. LANSOPRAZOLE. [Concomitant]
     Active Substance: LANSOPRAZOLE
     Indication: PRODUCT USED FOR UNKNOWN INDICATION
     Dosage: 30 MG, QD (BY MOUTH)
     Route: 065
  29. MIRALAX [Concomitant]
     Active Substance: POLYETHYLENE GLYCOL 3350
     Indication: CONSTIPATION
     Dosage: 17 GM/DOSE ORAL POWDER EVERY DAY BY ORAL ROUTE AS NEEDED
     Route: 048
  30. PROVENTIL HFA [Concomitant]
     Active Substance: ALBUTEROL SULFATE
     Indication: WHEEZING
  31. ADVAIR HFA [Concomitant]
     Active Substance: FLUTICASONE PROPIONATE\SALMETEROL XINAFOATE
     Dosage: 115 MCG-21 MCG/ACTUATION (2 PUFFS)
     Route: 055
     Dates: start: 20121126
  32. EPIPEN [Concomitant]
     Active Substance: EPINEPHRINE
     Indication: PRODUCT USED FOR UNKNOWN INDICATION
     Dosage: 1 DF, PRN 0.3MG/0.3 ML (1:1000)
     Route: 030
  33. METOCLOPRAMIDE. [Concomitant]
     Active Substance: METOCLOPRAMIDE
     Indication: PRODUCT USED FOR UNKNOWN INDICATION
     Dosage: 2.5 ML, BID 5 MG/5 ML (ORAL SOLUTION)
     Route: 048

REACTIONS (2)
  - Pseudomonas infection [Unknown]
  - Drug resistance [Not Recovered/Not Resolved]
